FAERS Safety Report 14650250 (Version 2)
Quarter: 2018Q2

REPORT INFORMATION
  Report Type: Report from Study
  Country: GB (occurrence: GB)
  Receive Date: 20180316
  Receipt Date: 20180406
  Transmission Date: 20180711
  Serious: Yes (Other)
  Sender: FDA-Public Use
  Company Number: PHHY2016GB070587

PATIENT
  Age: 44 Year
  Sex: Female

DRUGS (3)
  1. GILENYA [Suspect]
     Active Substance: FINGOLIMOD HYDROCHLORIDE
     Dosage: 0.5 MG, UNK
     Route: 048
     Dates: start: 20170115
  2. GILENYA [Suspect]
     Active Substance: FINGOLIMOD HYDROCHLORIDE
     Indication: MULTIPLE SCLEROSIS
     Dosage: UNK, QD
     Route: 048
     Dates: start: 20140312, end: 20161201
  3. AMANTADINE. [Suspect]
     Active Substance: AMANTADINE HYDROCHLORIDE
     Indication: PRODUCT USED FOR UNKNOWN INDICATION
     Route: 065

REACTIONS (12)
  - Haemoglobin increased [Unknown]
  - Chalazion [Unknown]
  - Blood albumin decreased [Unknown]
  - Ophthalmic herpes zoster [Recovered/Resolved]
  - Back pain [Unknown]
  - Vitamin D decreased [Unknown]
  - Fatigue [Unknown]
  - Periorbital cellulitis [Recovered/Resolved]
  - Alanine aminotransferase increased [Unknown]
  - Blood sodium decreased [Unknown]
  - Muscle spasms [Recovered/Resolved]
  - Sleep disorder [Unknown]

NARRATIVE: CASE EVENT DATE: 20140424
